FAERS Safety Report 5924830-X (Version None)
Quarter: 2008Q4

REPORT INFORMATION
  Report Type: 
  Country: None (occurrence: None)
  Receive Date: 20081020
  Receipt Date: 20081020
  Transmission Date: 20090506
  Serious: Yes (Hospitalization)
  Sender: FDA-Public Use
  Company Number: None

PATIENT
  Age: 62 Year
  Sex: Female

DRUGS (2)
  1. OXALIPLATIN [Suspect]
     Indication: RECTAL CANCER
     Dates: start: 20080916, end: 20081002
  2. FLUOROURACIL [Suspect]
     Indication: METASTASES TO LIVER

REACTIONS (2)
  - CATHETER SITE HAEMORRHAGE [None]
  - HAEMATOMA [None]
